FAERS Safety Report 5397708-0 (Version None)
Quarter: 2007Q3

REPORT INFORMATION
  Report Type: 
  Country: None (occurrence: None)
  Receive Date: 20070723
  Receipt Date: 20070723
  Transmission Date: 20080115
  Serious: Yes (Other)
  Sender: FDA-Public Use
  Company Number: None

PATIENT
  Sex: Female

DRUGS (1)
  1. ENBREL [Suspect]
     Indication: RHEUMATOID ARTHRITIS
     Dosage: 50MG  WEEKLY  SQ
     Route: 058
     Dates: start: 20060221, end: 20070612

REACTIONS (3)
  - ARTHRALGIA [None]
  - DRUG HYPERSENSITIVITY [None]
  - RASH [None]
